FAERS Safety Report 5086797-9 (Version None)
Quarter: 2006Q3

REPORT INFORMATION
  Report Type: 
  Country: None (occurrence: None)
  Receive Date: 20060823
  Receipt Date: 20060816
  Transmission Date: 20061208
  Serious: Yes (Hospitalization)
  Sender: FDA-Public Use
  Company Number: US-SANOFI-SYNTHELABO-A03200605214

PATIENT
  Sex: Female
  Weight: 62.58 kg

DRUGS (8)
  1. MULTI-VITAMIN [Concomitant]
     Dosage: UNK
     Route: 048
  2. ASCORBIC ACID [Concomitant]
     Dosage: UNK
     Route: 048
  3. COLACE [Concomitant]
     Dosage: UNK
     Route: 048
  4. ENULOSE [Concomitant]
     Dosage: UNK
     Route: 048
  5. EFFEXOR [Concomitant]
     Dosage: UNK
     Route: 048
  6. NAMENDA [Concomitant]
     Dosage: UNK
     Route: 048
  7. ARICEPT [Concomitant]
     Dosage: UNK
     Route: 048
  8. PLAVIX [Suspect]
     Indication: CEREBROVASCULAR ACCIDENT
     Route: 048
     Dates: start: 19990101

REACTIONS (3)
  - CONTUSION [None]
  - CONVULSION [None]
  - PNEUMONIA [None]
